APPROVED DRUG PRODUCT: CLOBAZAM
Active Ingredient: CLOBAZAM
Strength: 2.5MG/ML
Dosage Form/Route: SUSPENSION;ORAL
Application: A209796 | Product #001 | TE Code: AB
Applicant: HETERO LABS LTD UNIT III
Approved: Feb 24, 2020 | RLD: No | RS: No | Type: RX